FAERS Safety Report 22240280 (Version 2)
Quarter: 2023Q2

REPORT INFORMATION
  Report Type: Spontaneous
  Country: US (occurrence: None)
  Receive Date: 20230421
  Receipt Date: 20230608
  Transmission Date: 20230722
  Serious: Yes (Hospitalization)
  Sender: FDA-Public Use
  Company Number: 2023A087098

PATIENT
  Age: 22772 Day
  Sex: Female

DRUGS (4)
  1. TEZSPIRE [Suspect]
     Active Substance: TEZEPELUMAB-EKKO
     Indication: Asthma
     Route: 058
     Dates: start: 20230306
  2. TRILOGY [Concomitant]
  3. DEXILANT [Concomitant]
     Active Substance: DEXLANSOPRAZOLE
  4. PEPCID [Concomitant]
     Active Substance: FAMOTIDINE
     Indication: Gastrooesophageal reflux disease

REACTIONS (4)
  - Viral infection [Unknown]
  - Oropharyngeal pain [Recovered/Resolved]
  - Tonsillar hypertrophy [Recovered/Resolved]
  - Odynophagia [Recovered/Resolved]

NARRATIVE: CASE EVENT DATE: 20230330
